FAERS Safety Report 4684453-X (Version None)
Quarter: 2005Q2

REPORT INFORMATION
  Report Type: 
  Country: None (occurrence: None)
  Receive Date: 20050531
  Receipt Date: 20050502
  Transmission Date: 20051028
  Serious: Yes (Death)
  Sender: FDA-Public Use
  Company Number: US_0501110998

PATIENT

DRUGS (3)
  1. ZYPREXA [Suspect]
     Indication: ANXIETY
     Dates: start: 19970101
  2. ZYPREXA [Suspect]
     Indication: BIPOLAR DISORDER
     Dates: start: 19970101
  3. ZYPREXA [Suspect]
     Indication: DEPRESSION
     Dates: start: 19970101

REACTIONS (1)
  - DIABETES MELLITUS [None]
